FAERS Safety Report 4354875-5 (Version None)
Quarter: 2004Q2

REPORT INFORMATION
  Report Type: 
  Country: None (occurrence: None)
  Receive Date: 20040507
  Receipt Date: 20040428
  Transmission Date: 20050107
  Serious: Yes (Other)
  Sender: FDA-Public Use
  Company Number: PHBS2004TR05844

PATIENT
  Age: 42 Year
  Sex: Female

DRUGS (1)
  1. METOPROLOL SUCCINATE [Suspect]
     Indication: ATRIAL TACHYCARDIA

REACTIONS (5)
  - DISCOMFORT [None]
  - INGROWING NAIL [None]
  - NAIL DISORDER [None]
  - PAIN [None]
  - PARONYCHIA [None]
